FAERS Safety Report 13004974 (Version 1)
Quarter: 2016Q4

REPORT INFORMATION
  Report Type: Report from Study
  Country: JP (occurrence: JP)
  Receive Date: 20161207
  Receipt Date: 20161207
  Transmission Date: 20170207
  Serious: Yes (Death)
  Sender: FDA-Public Use
  Company Number: JP-ROCHE-1162405

PATIENT
  Age: 33 Year
  Sex: Female
  Weight: 50 kg

DRUGS (17)
  1. ETIZOLAM [Concomitant]
     Active Substance: ETIZOLAM
     Indication: MUSCLE TIGHTNESS
     Route: 048
  2. MOHRUS TAPE [Concomitant]
     Active Substance: KETOPROFEN
     Indication: PAIN
     Route: 062
  3. DERMOVATE [Concomitant]
     Active Substance: CLOBETASOL
     Indication: ECZEMA
     Route: 003
  4. OCRELIZUMAB [Suspect]
     Active Substance: OCRELIZUMAB
     Indication: RHEUMATOID ARTHRITIS
     Dosage: DAY1 AND DAY15 ADMINISTERING
     Route: 042
     Dates: start: 20090909, end: 20090924
  5. MUCOSTA [Concomitant]
     Active Substance: REBAMIPIDE
     Indication: GASTRITIS
     Route: 048
  6. INTEBAN [Concomitant]
     Active Substance: INDOMETHACIN
     Indication: PAIN
     Route: 062
  7. OCRELIZUMAB [Suspect]
     Active Substance: OCRELIZUMAB
     Indication: RHEUMATOID ARTHRITIS
  8. PREDNISOLONE. [Suspect]
     Active Substance: PREDNISOLONE
     Indication: RHEUMATOID ARTHRITIS
     Route: 048
     Dates: start: 20121010
  9. OCRELIZUMAB [Suspect]
     Active Substance: OCRELIZUMAB
     Indication: RHEUMATOID ARTHRITIS
     Dosage: DAY1 AND DAY15 ADMINISTERING
     Route: 042
     Dates: start: 20090219, end: 20090305
  10. LANSOPRAZOLE. [Concomitant]
     Active Substance: LANSOPRAZOLE
     Indication: GASTRIC ULCER
     Route: 048
  11. CELECOX [Concomitant]
     Active Substance: CELECOXIB
     Indication: PAIN
     Route: 048
  12. ACUATIM [Concomitant]
     Active Substance: NADIFLOXACIN
     Indication: FOLLICULITIS
     Route: 003
  13. METHYCOOL [Concomitant]
     Active Substance: METHYLCOBALAMIN
     Indication: NEUROPATHY PERIPHERAL
     Route: 048
  14. TOCILIZUMAB [Suspect]
     Active Substance: TOCILIZUMAB
     Indication: RHEUMATOID ARTHRITIS
     Route: 042
     Dates: start: 20120403, end: 20120912
  15. METHOTREXATE. [Suspect]
     Active Substance: METHOTREXATE
     Indication: RHEUMATOID ARTHRITIS
     Route: 048
     Dates: end: 20120607
  16. GLORIAMIN [Concomitant]
     Indication: GASTRITIS
     Route: 048
  17. EPERISONE HYDROCHLORIDE [Concomitant]
     Active Substance: EPERISONE HYDROCHLORIDE
     Indication: MUSCLE TIGHTNESS
     Route: 048

REACTIONS (1)
  - Ovarian neoplasm [Fatal]

NARRATIVE: CASE EVENT DATE: 20121126
